FAERS Safety Report 16637758 (Version 6)
Quarter: 2020Q2

REPORT INFORMATION
  Report Type: Spontaneous
  Country: PT (occurrence: PT)
  Receive Date: 20190726
  Receipt Date: 20200408
  Transmission Date: 20200713
  Serious: Yes (Other)
  Sender: FDA-Public Use
  Company Number: PT-PFIZER INC-2019316640

PATIENT
  Age: 19 Year
  Sex: Female

DRUGS (2)
  1. SALAZOPYRINE EN [Suspect]
     Active Substance: SULFASALAZINE
     Dosage: GREATER THAN 1G/DAY
  2. ETANERCEPT [Suspect]
     Active Substance: ETANERCEPT
     Indication: PSORIATIC ARTHROPATHY
     Dosage: UNK
     Route: 065

REACTIONS (6)
  - Leukopenia [Unknown]
  - Tenosynovitis [Unknown]
  - Treatment failure [Unknown]
  - Condition aggravated [Unknown]
  - Cell death [Unknown]
  - Polyarthritis [Unknown]
